FAERS Safety Report 9355990 (Version 1)
Quarter: 2013Q2

REPORT INFORMATION
  Report Type: Spontaneous
  Country: US (occurrence: US)
  Receive Date: 20130619
  Receipt Date: 20130619
  Transmission Date: 20140414
  Serious: No
  Sender: FDA-Public Use
  Company Number: US-TEVA-412983USA

PATIENT
  Age: 57 Year
  Sex: Female
  Weight: 58.57 kg

DRUGS (4)
  1. NUVIGIL [Suspect]
     Indication: SOMNOLENCE
     Route: 048
     Dates: start: 20130611
  2. PREMPRO [Concomitant]
     Indication: HORMONE THERAPY
  3. VITAMIN D3 [Concomitant]
     Indication: HYPOVITAMINOSIS
  4. REQUIP [Concomitant]
     Indication: RESTLESS LEGS SYNDROME

REACTIONS (4)
  - Feeling jittery [Not Recovered/Not Resolved]
  - Psychomotor hyperactivity [Not Recovered/Not Resolved]
  - Logorrhoea [Not Recovered/Not Resolved]
  - Inappropriate schedule of drug administration [Not Recovered/Not Resolved]
